FAERS Safety Report 8263287-3 (Version None)
Quarter: 2012Q1

REPORT INFORMATION
  Report Type: 
  Country: None (occurrence: None)
  Receive Date: 20120327
  Receipt Date: 20080916
  Transmission Date: 20120608
  Serious: Yes (Other)
  Sender: FDA-Public Use
  Company Number: PHEH2008US08447

PATIENT
  Sex: Female

DRUGS (1)
  1. GLEEVEC [Suspect]
     Dates: start: 20071201

REACTIONS (2)
  - WEIGHT INCREASED [None]
  - FLUID RETENTION [None]
